FAERS Safety Report 5343449-5 (Version None)
Quarter: 2007Q2

REPORT INFORMATION
  Report Type: 
  Country: None (occurrence: None)
  Receive Date: 20070531
  Receipt Date: 20061129
  Transmission Date: 20071010
  Serious: Yes (Other)
  Sender: FDA-Public Use
  Company Number: 2006VX002378

PATIENT
  Age: 70 Year
  Sex: Female

DRUGS (1)
  1. FLURAZEPAM HCL [Suspect]
     Dosage: 300 MG; X1; PO
     Route: 048

REACTIONS (2)
  - OVERDOSE [None]
  - SUICIDAL BEHAVIOUR [None]
